FAERS Safety Report 17489744 (Version 1)
Quarter: 2020Q1

REPORT INFORMATION
  Report Type: Spontaneous
  Country: US (occurrence: US)
  Receive Date: 20200303
  Receipt Date: 20200303
  Transmission Date: 20200409
  Serious: Yes (Life-Threatening, Hospitalization)
  Sender: FDA-Public Use
  Company Number: US-BAYER-2020-036629

PATIENT
  Age: 90 Year
  Sex: Female

DRUGS (2)
  1. ACETYLSALICYLIC ACID [Suspect]
     Active Substance: ASPIRIN
  2. APIXABAN [Interacting]
     Active Substance: APIXABAN

REACTIONS (5)
  - Labelled drug-drug interaction medication error [None]
  - Product use in unapproved indication [None]
  - Subarachnoid haemorrhage [None]
  - Off label use [None]
  - Intraventricular haemorrhage [None]
